FAERS Safety Report 4267874-9 (Version None)
Quarter: 2004Q1

REPORT INFORMATION
  Report Type: 
  Country: None (occurrence: None)
  Receive Date: 20040109
  Receipt Date: 20031124
  Transmission Date: 20041129
  Serious: Yes (Life-Threatening, Hospitalization, Other)
  Sender: FDA-Public Use
  Company Number: US-GLAXOSMITHKLINE-A0441027A

PATIENT
  Age: 42 Year
  Sex: Male
  Weight: 64.1 kg

DRUGS (2)
  1. TRIZIVIR [Suspect]
     Indication: HIV INFECTION
     Route: 048
     Dates: start: 20031030, end: 20031109
  2. KALETRA [Concomitant]
     Route: 048
     Dates: start: 20031030, end: 20031109

REACTIONS (20)
  - ABDOMINAL PAIN UPPER [None]
  - ALANINE AMINOTRANSFERASE INCREASED [None]
  - ARTHRALGIA [None]
  - ASPARTATE AMINOTRANSFERASE INCREASED [None]
  - BLOOD LACTATE DEHYDROGENASE INCREASED [None]
  - CHILLS [None]
  - DRUG HYPERSENSITIVITY [None]
  - DYSPNOEA [None]
  - FATIGUE [None]
  - HEADACHE [None]
  - LETHARGY [None]
  - MALAISE [None]
  - MUSCLE ATROPHY [None]
  - MYALGIA [None]
  - NAUSEA [None]
  - PRURITUS [None]
  - PYREXIA [None]
  - RESPIRATORY FAILURE [None]
  - URTICARIA [None]
  - VOMITING [None]
